FAERS Safety Report 17239371 (Version 1)
Quarter: 2020Q1

REPORT INFORMATION
  Report Type: Spontaneous
  Country: CA (occurrence: CA)
  Receive Date: 20200106
  Receipt Date: 20200106
  Transmission Date: 20200409
  Serious: Yes (Death, Other)
  Sender: FDA-Public Use
  Company Number: CA-PFIZER INC-2020003219

PATIENT
  Age: 79 Year
  Sex: Male

DRUGS (6)
  1. ACTEMRA [Suspect]
     Active Substance: TOCILIZUMAB
     Indication: RHEUMATOID ARTHRITIS
     Dosage: 704 MG, UNK
     Route: 042
     Dates: start: 2018
  2. ACTEMRA [Suspect]
     Active Substance: TOCILIZUMAB
     Dosage: 704 MG, UNK
     Route: 042
     Dates: start: 2018
  3. METHOTREXATE SODIUM. [Suspect]
     Active Substance: METHOTREXATE SODIUM
     Dosage: 20 MG, UNK
     Route: 065
     Dates: start: 2018
  4. ACTEMRA [Suspect]
     Active Substance: TOCILIZUMAB
     Dosage: 704 MG, UNK
     Route: 042
     Dates: start: 2018
  5. ACTEMRA [Suspect]
     Active Substance: TOCILIZUMAB
     Dosage: 704 MG, UNK
     Route: 042
     Dates: start: 2018
  6. ATORVASTATIN [Concomitant]
     Active Substance: ATORVASTATIN
     Dosage: UNK

REACTIONS (2)
  - Pulmonary fibrosis [Fatal]
  - Pneumonia [Not Recovered/Not Resolved]

NARRATIVE: CASE EVENT DATE: 2018
